FAERS Safety Report 7274026-7 (Version None)
Quarter: 2011Q1

REPORT INFORMATION
  Report Type: 
  Country: None (occurrence: None)
  Receive Date: 20110203
  Receipt Date: 20110126
  Transmission Date: 20110831
  Serious: Yes (Other)
  Sender: FDA-Public Use
  Company Number: US-AMGEN-USASP2010010173

PATIENT
  Age: 67 Year
  Sex: Male

DRUGS (11)
  1. PROCRIT [Suspect]
     Dosage: 20000 IU, Q2WK
     Route: 058
     Dates: start: 20091201, end: 20100202
  2. ACCUPRIL [Concomitant]
  3. NEORAL [Concomitant]
  4. PROCRIT [Suspect]
     Dosage: 20000 IU, UNK
     Route: 058
     Dates: start: 20100202, end: 20101120
  5. CELLCEPT [Concomitant]
  6. VALCYTE [Concomitant]
  7. SULFAMETHOXAZOLE [Concomitant]
  8. ALLOPURINOL [Concomitant]
     Dosage: UNK
  9. TRIMETOPRIM                        /00158501/ [Concomitant]
  10. PROCRIT [Suspect]
     Indication: NEPHROGENIC ANAEMIA
     Dosage: 10000 IU, QWK
     Route: 058
     Dates: start: 20090601, end: 20091201
  11. FLAGYL [Concomitant]

REACTIONS (8)
  - GASTROINTESTINAL HAEMORRHAGE [None]
  - MYELOPROLIFERATIVE DISORDER [None]
  - CYTOMEGALOVIRUS COLITIS [None]
  - MYELODYSPLASTIC SYNDROME [None]
  - THERAPEUTIC RESPONSE DECREASED [None]
  - MONOCLONAL IMMUNOGLOBULIN PRESENT [None]
  - HYPERPARATHYROIDISM [None]
  - RENAL FAILURE CHRONIC [None]
